FAERS Safety Report 10069892 (Version 1)
Quarter: 2014Q2

REPORT INFORMATION
  Report Type: Spontaneous
  Country: US (occurrence: US)
  Receive Date: 20140410
  Receipt Date: 20140410
  Transmission Date: 20141212
  Serious: Yes (Other)
  Sender: FDA-Public Use
  Company Number: US-ASTRAZENECA-2014SE23459

PATIENT
  Age: 71 Year
  Sex: Female
  Weight: 44 kg

DRUGS (7)
  1. OMEPRAZOLE [Suspect]
     Indication: GASTRIC DISORDER
     Route: 048
     Dates: start: 2013
  2. MECLYVINE [Concomitant]
     Indication: VERTIGO
     Dosage: 25 MG QID PRN
     Route: 048
     Dates: start: 1975
  3. LITHIUM [Concomitant]
     Indication: BIPOLAR DISORDER
     Route: 048
     Dates: start: 1993
  4. CLONAZEPAM [Concomitant]
     Indication: BIPOLAR DISORDER
     Route: 048
     Dates: start: 1993
  5. ATIVAN [Concomitant]
     Indication: BACK PAIN
     Dosage: 0.5 MG BID PRN
     Route: 048
     Dates: start: 1985
  6. INDERAL [Concomitant]
     Indication: MIGRAINE
     Dosage: 10 MG 2 TO 3 TIMES A DAY WHILE IN HOSPICE
     Route: 048
  7. INDERAL [Concomitant]
     Indication: MIGRAINE
     Route: 048
     Dates: end: 2013

REACTIONS (12)
  - Convulsion [Unknown]
  - Lip and/or oral cavity cancer [Unknown]
  - Throat cancer [Unknown]
  - Nervousness [Unknown]
  - Tremor [Unknown]
  - Weight increased [Unknown]
  - Upper-airway cough syndrome [Unknown]
  - Slow speech [Unknown]
  - Abdominal pain [Unknown]
  - Abdominal pain [Unknown]
  - Diarrhoea [Unknown]
  - Malaise [Unknown]
